FAERS Safety Report 8023117-1 (Version None)
Quarter: 2012Q1

REPORT INFORMATION
  Report Type: 
  Country: None (occurrence: None)
  Receive Date: 20120104
  Receipt Date: 20111228
  Transmission Date: 20120608
  Serious: Yes (Death)
  Sender: FDA-Public Use
  Company Number: US-PFIZER INC-US-WYE-H13727610

PATIENT
  Age: 43 Year
  Sex: Female

DRUGS (4)
  1. SALICYLATES [Suspect]
     Dosage: UNKNOWN
     Route: 065
     Dates: start: 20080101, end: 20080101
  2. TRAZODONE [Suspect]
     Dosage: UNKNOWN
     Route: 065
     Dates: start: 20080101, end: 20080101
  3. IBUPROFEN [Suspect]
     Dosage: UNKNOWN
     Route: 065
     Dates: start: 20080101, end: 20080101
  4. QUETIAPINE [Suspect]
     Dosage: UNKNOWN
     Route: 065
     Dates: start: 20080101, end: 20080101

REACTIONS (1)
  - DEATH [None]
